FAERS Safety Report 21211799 (Version 1)
Quarter: 2022Q3

REPORT INFORMATION
  Report Type: Spontaneous
  Country: JP (occurrence: JP)
  Receive Date: 20220815
  Receipt Date: 20220815
  Transmission Date: 20221027
  Serious: Yes (Other)
  Sender: FDA-Public Use
  Company Number: JP-PFIZER INC-PV202200035913

PATIENT
  Age: 8 Decade
  Sex: Female

DRUGS (6)
  1. PENICILLIN G BENZATHINE [Suspect]
     Active Substance: PENICILLIN G BENZATHINE
  2. MIDAZOLAM [Concomitant]
     Active Substance: MIDAZOLAM
     Dosage: 2 MG
  3. FENTANYL [Concomitant]
     Active Substance: FENTANYL
     Dosage: 100 UG
  4. ROCURONIUM [Concomitant]
     Active Substance: ROCURONIUM BROMIDE
     Dosage: 50 MG
  5. DESFLURANE [Concomitant]
     Active Substance: DESFLURANE
  6. REMIFENTANIL [Concomitant]
     Active Substance: REMIFENTANIL
     Dosage: 0.25 UG/KG-1/MIN-1

REACTIONS (2)
  - Altered state of consciousness [Recovered/Resolved]
  - Delayed recovery from anaesthesia [Recovered/Resolved]
